FAERS Safety Report 9840488 (Version 1)
Quarter: 2013Q4

REPORT INFORMATION
  Report Type: Spontaneous
  Country: US (occurrence: None)
  Receive Date: 20131211
  Receipt Date: 20131211
  Transmission Date: 20140711
  Serious: Yes (Hospitalization)
  Sender: FDA-Public Use
  Company Number: TKT01200700175

PATIENT
  Age: 9 Year
  Sex: Male
  Weight: 22.5 kg

DRUGS (3)
  1. IDURSULFASE [Suspect]
     Indication: MUCOPOLYSACCHARIDOSIS II
     Route: 041
     Dates: start: 20070226
  2. MOTRIN (IBUPROFEN) [Concomitant]
  3. AMPICILLIN (AMPICILLIN) [Concomitant]

REACTIONS (4)
  - Obstructive airways disorder [None]
  - Epiglottic oedema [None]
  - Pharyngeal disorder [None]
  - Laryngeal oedema [None]
